FAERS Safety Report 7314028-5 (Version None)
Quarter: 2011Q1

REPORT INFORMATION
  Report Type: 
  Country: None (occurrence: None)
  Receive Date: 20110225
  Receipt Date: 20101228
  Transmission Date: 20110831
  Serious: No
  Sender: FDA-Public Use
  Company Number: US-ABBOTT-11P-163-0694615-00

PATIENT
  Sex: Male

DRUGS (1)
  1. ULTANE [Suspect]
     Indication: EYELID PTOSIS
     Dates: start: 20101217, end: 20101217

REACTIONS (2)
  - DISORIENTATION [None]
  - AGGRESSION [None]
